FAERS Safety Report 19404029 (Version 1)
Quarter: 2021Q2

REPORT INFORMATION
  Report Type: Spontaneous
  Country: US (occurrence: US)
  Receive Date: 20210610
  Receipt Date: 20210610
  Transmission Date: 20210717
  Serious: Yes (Death)
  Sender: FDA-Public Use
  Company Number: None

PATIENT
  Age: 78 Year
  Sex: Male

DRUGS (1)
  1. REVLIMID [Suspect]
     Active Substance: LENALIDOMIDE
     Indication: PLASMA CELL MYELOMA
     Route: 048
     Dates: start: 20200519, end: 20210504

REACTIONS (11)
  - Hyperkalaemia [None]
  - Ejection fraction decreased [None]
  - Tumour lysis syndrome [None]
  - Skin haemorrhage [None]
  - Cardiac failure [None]
  - Haemoptysis [None]
  - Anaemia [None]
  - Pulmonary haemorrhage [None]
  - Gastrointestinal haemorrhage [None]
  - Thrombocytopenia [None]
  - Haemorrhage urinary tract [None]

NARRATIVE: CASE EVENT DATE: 20210525
